FAERS Safety Report 6305635-7 (Version None)
Quarter: 2009Q3

REPORT INFORMATION
  Report Type: 
  Country: None (occurrence: None)
  Receive Date: 20090806
  Receipt Date: 20090730
  Transmission Date: 20100115
  Serious: Yes (Death)
  Sender: FDA-Public Use
  Company Number: 2009JP004684

PATIENT
  Age: 74 Year
  Sex: Female

DRUGS (3)
  1. PROGRAF [Suspect]
     Indication: RHEUMATOID ARTHRITIS
  2. METHOTREXATE [Suspect]
     Indication: RHEUMATOID ARTHRITIS
  3. PREDNISOLONE [Suspect]
     Indication: RHEUMATOID ARTHRITIS

REACTIONS (15)
  - ABDOMINAL DISTENSION [None]
  - ADHESION [None]
  - ANAEMIA [None]
  - ANEURYSM RUPTURED [None]
  - ARTERIAL SPASM [None]
  - ENDOTOXIC SHOCK [None]
  - FAT NECROSIS [None]
  - FIBROSIS [None]
  - HAEMODIALYSIS [None]
  - INTESTINAL ISCHAEMIA [None]
  - INTRA-ABDOMINAL HAEMORRHAGE [None]
  - PANCREATIC ABSCESS [None]
  - PANCREATIC NECROSIS [None]
  - PANCREATITIS ACUTE [None]
  - THROMBOSIS [None]
